FAERS Safety Report 20049610 (Version 1)
Quarter: 2021Q4

REPORT INFORMATION
  Report Type: Other
  Country: US (occurrence: None)
  Receive Date: 20211109
  Receipt Date: 20211109
  Transmission Date: 20220303
  Serious: Yes (Other)
  Sender: FDA-Public Use
  Company Number: US-Invatech-000163

PATIENT
  Age: 35 Year
  Sex: Male

DRUGS (2)
  1. NAPROXEN SODIUM [Suspect]
     Active Substance: NAPROXEN SODIUM
     Indication: Extraskeletal ossification
     Dosage: 500MG, ONE TABLET TWICE PER DAY FOR?21 DAYS
  2. ASPIRIN [Suspect]
     Active Substance: ASPIRIN
     Indication: Anticoagulant therapy
     Dosage: 325 MG, FOR 14 DAYS

REACTIONS (1)
  - Extraskeletal ossification [Unknown]
